FAERS Safety Report 21294014 (Version 1)
Quarter: 2022Q3

REPORT INFORMATION
  Report Type: Spontaneous
  Country: BE (occurrence: BE)
  Receive Date: 20220905
  Receipt Date: 20220905
  Transmission Date: 20221027
  Serious: Yes (Disabling)
  Sender: FDA-Public Use
  Company Number: None

PATIENT

DRUGS (2)
  1. ZYBAN [Suspect]
     Active Substance: BUPROPION HYDROCHLORIDE
     Indication: Ex-tobacco user
     Dosage: 1 DF, QD,1 TABLET DAILY, FOR 6 DAYS, THEN 2 TABLETS DAILY
     Route: 048
     Dates: start: 20220715
  2. ZYBAN [Suspect]
     Active Substance: BUPROPION HYDROCHLORIDE
     Dosage: 2 DF, QD,1 TABLET DAILY, FOR 6 DAYS, THEN 2 TABLETS DAILY
     Route: 048
     Dates: end: 20220820

REACTIONS (4)
  - Pollakiuria [Unknown]
  - Eyelid irritation [Unknown]
  - Swelling of eyelid [Unknown]
  - Insomnia [Unknown]

NARRATIVE: CASE EVENT DATE: 20220805
